FAERS Safety Report 5648611-X (Version None)
Quarter: 2008Q1

REPORT INFORMATION
  Report Type: 
  Country: None (occurrence: None)
  Receive Date: 20080229
  Receipt Date: 20071207
  Transmission Date: 20080703
  Serious: Yes (Death, Hospitalization, Other)
  Sender: FDA-Public Use
  Company Number: MK-6028167

PATIENT
  Age: 14 Year
  Sex: Female

DRUGS (19)
  1. FLUOXETINE HCL [Suspect]
     Indication: DEPRESSION
     Dosage: 20 MG; ORAL; DAILY; 40 MG; ORAL; DAILY; 40 MG; DAILY ORAL
     Route: 048
     Dates: start: 20040611, end: 20040625
  2. FLUOXETINE HCL [Suspect]
     Indication: DEPRESSION
     Dosage: 20 MG; ORAL; DAILY; 40 MG; ORAL; DAILY; 40 MG; DAILY ORAL
     Route: 048
     Dates: start: 20040515
  3. FLUOXETINE HCL [Suspect]
     Indication: DEPRESSION
     Dosage: 20 MG; ORAL; DAILY; 40 MG; ORAL; DAILY; 40 MG; DAILY ORAL
     Route: 048
     Dates: start: 20040515
  4. ENDEP [Suspect]
     Indication: INSOMNIA
     Dosage: 10 MG; TABLET; ORAL; AT BEDTIME ORAL
     Dates: start: 20040625
  5. ENDEP [Suspect]
     Indication: INSOMNIA
     Dosage: 10 MG; TABLET; ORAL; AT BEDTIME ORAL
     Dates: start: 20040625
  6. ZYPREXA [Suspect]
     Indication: AGITATION
     Dosage: 2.5 MG, ORAL; DAILY; 2.5 MG; DAILY; ORAL
     Route: 048
     Dates: start: 20040826, end: 20040101
  7. ZYPREXA [Suspect]
     Indication: AGITATION
     Dosage: 2.5 MG, ORAL; DAILY; 2.5 MG; DAILY; ORAL
     Route: 048
     Dates: start: 20040826, end: 20040101
  8. EFFEXOR XR [Suspect]
     Indication: DEPRESSION
     Dosage: 75 MG; ORAL; DAILY; 150 MG; DAILY; 150 MG; DAILY
     Route: 048
     Dates: start: 20040812, end: 20040924
  9. EFFEXOR XR [Suspect]
     Indication: DEPRESSION
     Dosage: 75 MG; ORAL; DAILY; 150 MG; DAILY; 150 MG; DAILY
     Route: 048
     Dates: start: 20040812, end: 20041007
  10. EFFEXOR XR [Suspect]
     Indication: DEPRESSION
     Dosage: 75 MG; ORAL; DAILY; 150 MG; DAILY; 150 MG; DAILY
     Route: 048
     Dates: start: 20040925, end: 20041007
  11. STILNOX /00914901/ (ZOLPIDEM) (CON.) [Concomitant]
  12. CANNABIS (CANNABIS SATIVA) (CON.) [Concomitant]
  13. DIANE-35 (DIANE) (CON.) [Concomitant]
  14. TETREX /00001701/ (TETRACYCLINE) (CON.) [Concomitant]
  15. DOXYCYCLINE (DOXYCYCLINE) (CON.) [Concomitant]
  16. AKAMIN /00232402/ (MINOCYCLINE HYDROCHLORIDE) (CON.) [Concomitant]
  17. ETDH - PRESUMED ETOH (ALCOHOL) (NO PREF. NAME) (CON.) [Concomitant]
  18. RITALIN (METHYLPHENIDATE HYDROCHLORIDE) (CON.) [Concomitant]
  19. SPEED (ALAXYL) (CON.) [Concomitant]

REACTIONS (21)
  - ADJUSTMENT DISORDER [None]
  - AGGRESSION [None]
  - AKATHISIA [None]
  - ASPHYXIA [None]
  - CERVICAL CORD COMPRESSION [None]
  - COMPLETED SUICIDE [None]
  - CONDITION AGGRAVATED [None]
  - CONTUSION [None]
  - DEPRESSION [None]
  - DRUG INEFFECTIVE [None]
  - DRUG INTERACTION [None]
  - HYPOXIC ENCEPHALOPATHY [None]
  - INFLUENZA LIKE ILLNESS [None]
  - INSOMNIA [None]
  - INTENTIONAL OVERDOSE [None]
  - INTENTIONAL SELF-INJURY [None]
  - LACERATION [None]
  - SOCIAL PHOBIA [None]
  - SOMNOLENCE [None]
  - TREATMENT NONCOMPLIANCE [None]
  - TREMOR [None]
